FAERS Safety Report 14052517 (Version 1)
Quarter: 2017Q4

REPORT INFORMATION
  Report Type: Spontaneous
  Country: US (occurrence: US)
  Receive Date: 20171005
  Receipt Date: 20171005
  Transmission Date: 20180321
  Serious: No
  Sender: FDA-Public Use
  Company Number: US-JNJFOC-20170820035

PATIENT
  Age: 52 Year
  Sex: Male
  Weight: 70.31 kg

DRUGS (2)
  1. IMODIUM A-D [Suspect]
     Active Substance: LOPERAMIDE HYDROCHLORIDE
     Route: 048
  2. IMODIUM A-D [Suspect]
     Active Substance: LOPERAMIDE HYDROCHLORIDE
     Indication: DIARRHOEA
     Dosage: EVERY OTHER NIGHT ; SOMETIMES EVERY NIGHT; DATE (ABOUT 2 WEEKS AGO),  LESS THAN 1 TBSP
     Route: 048

REACTIONS (1)
  - Eosinophil count increased [Not Recovered/Not Resolved]
